FAERS Safety Report 4276273-5 (Version None)
Quarter: 2004Q1

REPORT INFORMATION
  Report Type: 
  Country: None (occurrence: None)
  Receive Date: 20040121
  Receipt Date: 20040112
  Transmission Date: 20041129
  Serious: Yes (Death)
  Sender: FDA-Public Use
  Company Number: SE-ROCHE-355713

PATIENT
  Age: 32 Year
  Sex: Female
  Weight: 60 kg

DRUGS (2)
  1. ISOTRETINOIN [Suspect]
     Indication: ACNE
     Route: 048
     Dates: start: 20021215, end: 20030615
  2. ISOTRETINOIN [Suspect]
     Route: 048
     Dates: start: 20031115, end: 20031228

REACTIONS (18)
  - ABSCESS [None]
  - ACNE [None]
  - CARDIAC ARREST [None]
  - CHEST PAIN [None]
  - CHILLS [None]
  - DISEASE RECURRENCE [None]
  - FATIGUE [None]
  - GENERAL PHYSICAL HEALTH DETERIORATION [None]
  - HYPOTENSION [None]
  - INFLUENZA [None]
  - MULTI-ORGAN FAILURE [None]
  - MYOCARDITIS [None]
  - NAUSEA [None]
  - PAIN [None]
  - PYREXIA [None]
  - TACHYCARDIA [None]
  - TENDERNESS [None]
  - VOMITING [None]
